FAERS Safety Report 5588495-1 (Version None)
Quarter: 2008Q1

REPORT INFORMATION
  Report Type: 
  Country: None (occurrence: None)
  Receive Date: 20080111
  Receipt Date: 20080104
  Transmission Date: 20080703
  Serious: Yes (Hospitalization)
  Sender: FDA-Public Use
  Company Number: GB-ROCHE-539814

PATIENT
  Age: 66 Year
  Sex: Female
  Weight: 119 kg

DRUGS (2)
  1. ORLISTAT [Suspect]
     Indication: OBESITY
     Route: 048
     Dates: start: 20070801, end: 20071224
  2. UNSPECIFIED MEDICATIONS [Concomitant]

REACTIONS (5)
  - CELLULITIS [None]
  - HEART RATE IRREGULAR [None]
  - LOWER RESPIRATORY TRACT INFECTION [None]
  - MALAISE [None]
  - PNEUMONIA [None]
